FAERS Safety Report 24079280 (Version 2)
Quarter: 2024Q4

REPORT INFORMATION
  Report Type: Spontaneous
  Country: US (occurrence: US)
  Receive Date: 20240711
  Receipt Date: 20241020
  Transmission Date: 20250115
  Serious: No
  Sender: SANOFI AVENTIS
  Company Number: US-SA-SAC20240705000394

PATIENT
  Age: 19 Year
  Sex: Female
  Weight: 92.73 kg

DRUGS (10)
  1. DUPIXENT [Suspect]
     Active Substance: DUPILUMAB
     Indication: Dermatitis atopic
     Dosage: 300 MG, QOW
     Route: 058
     Dates: start: 202205, end: 2024
  2. DUPIXENT [Suspect]
     Active Substance: DUPILUMAB
     Indication: Eczema
  3. TRIAMCINOLONE [Concomitant]
     Active Substance: TRIAMCINOLONE
     Indication: Dermatitis
     Dosage: BID
     Route: 061
     Dates: start: 2019
  4. INTUNIV [Concomitant]
     Active Substance: GUANFACINE HYDROCHLORIDE
     Indication: Attention deficit hyperactivity disorder
     Dosage: DAILY
     Route: 048
     Dates: start: 2019
  5. CLOBETASOL [Concomitant]
     Active Substance: CLOBETASOL
     Indication: Dermatitis
     Dosage: DAILY
     Route: 061
     Dates: start: 2020
  6. HYDROXYZINE [Concomitant]
     Active Substance: HYDROXYZINE HYDROCHLORIDE
     Indication: Dermatitis
     Dosage: TID
     Route: 048
     Dates: start: 2021
  7. EUCRISA [Concomitant]
     Active Substance: CRISABOROLE
     Indication: Dermatitis
     Dosage: BID
     Route: 061
     Dates: start: 2023
  8. EPIPEN [Concomitant]
     Active Substance: EPINEPHRINE
     Indication: Dermatitis
     Dosage: PRN
     Dates: start: 2021
  9. FAMOTIDINE [Concomitant]
     Active Substance: FAMOTIDINE
     Indication: Dermatitis
     Dosage: BID
     Route: 048
     Dates: start: 2021
  10. ELIDEL [Concomitant]
     Active Substance: PIMECROLIMUS
     Indication: Dermatitis
     Dosage: BID
     Route: 061
     Dates: start: 2021

REACTIONS (1)
  - Exposure during pregnancy [Unknown]
